FAERS Safety Report 24677899 (Version 3)
Quarter: 2025Q4

REPORT INFORMATION
  Report Type: Spontaneous
  Country: US (occurrence: US)
  Receive Date: 20241129
  Receipt Date: 20251031
  Transmission Date: 20260119
  Serious: No
  Sender: ROCHE
  Company Number: US-ROCHE-10000137988

PATIENT
  Sex: Female

DRUGS (2)
  1. XOLAIR [Suspect]
     Active Substance: OMALIZUMAB
     Indication: Urticaria
     Dosage: STRENGTH: 150MG/ML
     Route: 058
     Dates: start: 202403
  2. XOLAIR [Suspect]
     Active Substance: OMALIZUMAB
     Indication: Rubber sensitivity

REACTIONS (2)
  - Urticaria [Unknown]
  - Maternal exposure timing unspecified [Unknown]
